FAERS Safety Report 21759191 (Version 1)
Quarter: 2022Q4

REPORT INFORMATION
  Report Type: Report from Study
  Country: US (occurrence: US)
  Receive Date: 20221221
  Receipt Date: 20221221
  Transmission Date: 20230112
  Serious: Yes (Death)
  Sender: FDA-Public Use
  Company Number: US-ABBVIE-4244353

PATIENT
  Sex: Female

DRUGS (1)
  1. VENCLEXTA [Suspect]
     Active Substance: VENETOCLAX
     Indication: Acute leukaemia
     Dosage: TAKE 2 TABLETS ONCE DAILY TAKE WITH ONE 50MG TABLET FOR A TOTAL DOSE OF 70MG DAILY
     Route: 048

REACTIONS (1)
  - Death [Fatal]
